FAERS Safety Report 24378930 (Version 3)
Quarter: 2024Q4

REPORT INFORMATION
  Report Type: Spontaneous
  Country: US (occurrence: US)
  Receive Date: 20240930
  Receipt Date: 20241009
  Transmission Date: 20250115
  Serious: No
  Sender: AMGEN
  Company Number: US-AMGEN-USASP2024189413

PATIENT
  Age: 36 Year
  Sex: Male
  Weight: 66.7 kg

DRUGS (1)
  1. NEULASTA [Suspect]
     Active Substance: PEGFILGRASTIM
     Indication: Prophylaxis
     Dosage: UNK
     Route: 065

REACTIONS (2)
  - Night sweats [Unknown]
  - Device adhesion issue [Unknown]

NARRATIVE: CASE EVENT DATE: 20240920
